FAERS Safety Report 11924928 (Version 2)
Quarter: 2016Q1

REPORT INFORMATION
  Report Type: Spontaneous
  Country: AU (occurrence: AU)
  Receive Date: 20160118
  Receipt Date: 20160219
  Transmission Date: 20160526
  Serious: Yes (Other)
  Sender: FDA-Public Use
  Company Number: AU-BAXTER-2015BAX071011

PATIENT
  Sex: Male

DRUGS (2)
  1. BAXTER 5% GLUCOSE 500ML INJECTION BP BOTTLE AHA0063 [Suspect]
     Active Substance: DEXTROSE
     Indication: MEDICATION DILUTION
     Route: 065
  2. OXALIPLATIN MAYNE [Suspect]
     Active Substance: OXALIPLATIN
     Indication: PRODUCT USED FOR UNKNOWN INDICATION
     Dosage: 100MG/20ML
     Route: 065
     Dates: end: 201512

REACTIONS (4)
  - Abasia [Unknown]
  - Hypoaesthesia [Unknown]
  - Muscle spasms [Recovering/Resolving]
  - Adverse drug reaction [Unknown]
